FAERS Safety Report 7409675-6 (Version None)
Quarter: 2011Q2

REPORT INFORMATION
  Report Type: 
  Country: None (occurrence: None)
  Receive Date: 20110412
  Receipt Date: 20110401
  Transmission Date: 20111010
  Serious: Yes (Hospitalization, Other)
  Sender: FDA-Public Use
  Company Number: FR-MPIJNJ-2010-06159

PATIENT

DRUGS (12)
  1. CALCIUM [Concomitant]
     Dosage: UNK
     Route: 048
     Dates: start: 20101201
  2. PAMIDRONIC ACID [Concomitant]
     Dosage: UNK
     Route: 042
     Dates: start: 20101116, end: 20101117
  3. SOLU-MEDROL [Concomitant]
     Dosage: UNK
     Dates: start: 20101116, end: 20101124
  4. FASTURTEC [Concomitant]
     Dosage: UNK
     Dates: start: 20101116, end: 20101124
  5. VELCADE [Suspect]
     Dosage: 2.46 MG, CYCLIC
     Route: 042
     Dates: start: 20090105, end: 20090205
  6. VELCADE [Suspect]
     Dosage: 2.46 MG, CYCLIC
     Route: 042
     Dates: start: 20101124, end: 20101220
  7. VELCADE [Suspect]
     Dosage: 1.9 MG, CYCLIC
     Route: 042
     Dates: start: 20101230, end: 20110110
  8. VITAMIN A [Concomitant]
     Dosage: UNK
     Dates: start: 20101201
  9. VELCADE [Suspect]
     Indication: MULTIPLE MYELOMA
     Dosage: 2.46 MG, CYCLIC
     Route: 042
     Dates: start: 20081106, end: 20081208
  10. DEXAMETHASONE [Concomitant]
     Indication: MULTIPLE MYELOMA
     Dosage: 40 MG, UNK
     Route: 048
     Dates: start: 20101118, end: 20101229
  11. NEXIUM [Concomitant]
     Dosage: UNK
     Dates: start: 20101118
  12. FUROSEMIDE [Concomitant]
     Dosage: UNK
     Route: 048
     Dates: start: 20101116, end: 20101124

REACTIONS (4)
  - HYPOCALCAEMIA [None]
  - HYPERCALCAEMIA [None]
  - THROMBOCYTOPENIA [None]
  - RENAL FAILURE ACUTE [None]
